FAERS Safety Report 8784270 (Version 1)
Quarter: 2012Q4

REPORT INFORMATION
  Report Type: Spontaneous
  Country: DK (occurrence: None)
  Receive Date: 20120830
  Receipt Date: 20120830
  Transmission Date: 20130627
  Serious: Yes (Hospitalization)
  Sender: FDA-Public Use
  Company Number: 2012MA010544

PATIENT
  Age: 65 Year
  Sex: Male

DRUGS (5)
  1. METFORMIN HYDROCHLORIDE [Suspect]
     Dates: end: 20111201
  2. GLICLAZIDE [Suspect]
     Dates: end: 20111201
  3. SAXAGLIPTIN [Suspect]
     Dates: end: 20071027
  4. ACETYLSALICYLIC ACID [Concomitant]
  5. RAMIPRIL(CO [Concomitant]

REACTIONS (9)
  - Constipation [None]
  - Vomiting [None]
  - Hypoglycaemia [None]
  - Asthenia [None]
  - Cerebrovascular accident [None]
  - Gastroenteritis [None]
  - General physical health deterioration [None]
  - Incontinence [None]
  - Fall [None]
